FAERS Safety Report 8184486-5 (Version None)
Quarter: 2012Q1

REPORT INFORMATION
  Report Type: 
  Country: None (occurrence: None)
  Receive Date: 20120305
  Receipt Date: 20120228
  Transmission Date: 20120608
  Serious: Yes (Hospitalization, Other)
  Sender: FDA-Public Use
  Company Number: JP-BAXTER-2012BH003817

PATIENT
  Age: 72 Year
  Sex: Male
  Weight: 70 kg

DRUGS (11)
  1. STUDY DRUG [Suspect]
     Indication: NON-SMALL CELL LUNG CANCER STAGE III
     Route: 058
     Dates: start: 20111128, end: 20120101
  2. ZOLPIDEM [Concomitant]
     Indication: INSOMNIA
     Route: 048
     Dates: start: 20110105
  3. CODEINE SULFATE [Concomitant]
     Indication: COUGH
     Route: 048
     Dates: start: 20120110
  4. METOCLOPRAMIDE HCL [Concomitant]
     Indication: PROPHYLAXIS
     Route: 042
     Dates: start: 20111115, end: 20111115
  5. MUCOSTA [Concomitant]
     Indication: PROPHYLAXIS AGAINST GASTROINTESTINAL ULCER
     Route: 048
     Dates: start: 20111102
  6. AZASETRON HYDROCHLORIDE [Concomitant]
     Indication: PROPHYLAXIS
     Route: 042
     Dates: start: 20111115, end: 20111115
  7. CYCLOPHOSPHAMIDE [Suspect]
     Indication: NON-SMALL CELL LUNG CANCER
     Route: 042
     Dates: start: 20111115, end: 20111115
  8. SOLU-MEDROL [Concomitant]
     Indication: RADIATION PNEUMONITIS
     Route: 042
     Dates: start: 20120110, end: 20120110
  9. LOXONIN [Concomitant]
     Indication: CANCER PAIN
     Route: 048
     Dates: start: 20111102
  10. PREDNISOLONE [Concomitant]
     Indication: RADIATION PNEUMONITIS
     Route: 048
     Dates: start: 20111216
  11. GARENOXACIN MESYLATE [Concomitant]
     Indication: RADIATION PNEUMONITIS
     Route: 048
     Dates: start: 20111215

REACTIONS (2)
  - RECALL PHENOMENON [None]
  - OPTIC ISCHAEMIC NEUROPATHY [None]
